FAERS Safety Report 9814900 (Version 1)
Quarter: 2014Q1

REPORT INFORMATION
  Report Type: Spontaneous
  Country: DE (occurrence: DE)
  Receive Date: 20140113
  Receipt Date: 20140113
  Transmission Date: 20141002
  Serious: Yes (Other)
  Sender: FDA-Public Use
  Company Number: DE-GLAXOSMITHKLINE-D0082408A

PATIENT
  Age: 59 Year
  Sex: Male

DRUGS (5)
  1. NARAMIG [Suspect]
     Route: 048
  2. ANTRA MUPS [Concomitant]
     Route: 048
  3. LOPEDIUM [Concomitant]
     Route: 048
  4. METOCLOPRAMID [Concomitant]
     Route: 065
  5. BELOC-ZOK RETARD [Concomitant]
     Route: 048

REACTIONS (2)
  - Drug dependence [Unknown]
  - Headache [Unknown]
